FAERS Safety Report 4532085-6 (Version None)
Quarter: 2004Q4

REPORT INFORMATION
  Report Type: 
  Country: None (occurrence: None)
  Receive Date: 20041217
  Receipt Date: 20041208
  Transmission Date: 20050328
  Serious: Yes (Other)
  Sender: FDA-Public Use
  Company Number: 2004-12-0338

PATIENT
  Age: 3 Year
  Sex: Female

DRUGS (1)
  1. CELESTONE [Suspect]
     Indication: COUGH
     Dosage: 140 DROPS QD ORAL
     Route: 048
     Dates: start: 20041206, end: 20041207

REACTIONS (2)
  - CONVERSION DISORDER [None]
  - DELUSION [None]
